FAERS Safety Report 9666814 (Version 2)
Quarter: 2013Q4

REPORT INFORMATION
  Report Type: Spontaneous
  Country: US (occurrence: US)
  Receive Date: 20131104
  Receipt Date: 20131211
  Transmission Date: 20140711
  Serious: No
  Sender: FDA-Public Use
  Company Number: US-BIOGENIDEC-2013BI087845

PATIENT
  Sex: Female

DRUGS (2)
  1. TECFIDERA [Suspect]
     Indication: MULTIPLE SCLEROSIS
  2. TECFIDERA [Suspect]
     Indication: MULTIPLE SCLEROSIS

REACTIONS (12)
  - Muscle spasms [Unknown]
  - Ulcer [Unknown]
  - Constipation [Unknown]
  - Aphagia [Unknown]
  - Drug intolerance [Unknown]
  - Blister [Unknown]
  - Adverse reaction [Unknown]
  - Gastrointestinal disorder [Unknown]
  - Diarrhoea [Unknown]
  - Retching [Unknown]
  - Rash [Unknown]
  - Nausea [Unknown]
